FAERS Safety Report 9525371 (Version 3)
Quarter: 2014Q1

REPORT INFORMATION
  Report Type: Report from Study
  Country: CA (occurrence: CA)
  Receive Date: 20130916
  Receipt Date: 20140313
  Transmission Date: 20141002
  Serious: Yes (Other)
  Sender: FDA-Public Use
  Company Number: CA-ROCHE-1231859

PATIENT
  Age: 80 Year
  Sex: Female
  Weight: 64.4 kg

DRUGS (11)
  1. ACTEMRA [Suspect]
     Indication: RHEUMATOID ARTHRITIS
     Route: 042
     Dates: start: 20130509, end: 20130611
  2. RITUXAN [Suspect]
     Indication: RHEUMATOID ARTHRITIS
     Route: 042
     Dates: start: 20130826
  3. METHOTREXATE [Concomitant]
  4. TRANDATE [Concomitant]
  5. IRBESARTAN [Concomitant]
  6. RESTORIL (CANADA) [Concomitant]
  7. LITHIUM CARBONATE [Concomitant]
  8. TRAZODONE [Concomitant]
  9. FOLIC ACID [Concomitant]
  10. TYLENOL [Concomitant]
  11. AMLODIPINE [Concomitant]

REACTIONS (8)
  - Drug ineffective [Unknown]
  - Abdominal pain [Recovered/Resolved]
  - Headache [Recovered/Resolved]
  - Arthralgia [Recovered/Resolved]
  - Blood pressure increased [Not Recovered/Not Resolved]
  - Feeling abnormal [Unknown]
  - Blood pressure fluctuation [Not Recovered/Not Resolved]
  - Heart rate decreased [Not Recovered/Not Resolved]
